FAERS Safety Report 9684905 (Version 3)
Quarter: 2013Q4

REPORT INFORMATION
  Report Type: Report from Study
  Country: BR (occurrence: BR)
  Receive Date: 20131113
  Receipt Date: 20131209
  Transmission Date: 20140711
  Serious: Yes (Other)
  Sender: FDA-Public Use
  Company Number: BR-ROCHE-1278585

PATIENT
  Age: 35 Year
  Sex: Female
  Weight: 70 kg

DRUGS (3)
  1. ZELBORAF [Suspect]
     Indication: METASTATIC MALIGNANT MELANOMA
     Route: 048
     Dates: start: 20130612
  2. VONAU [Concomitant]
     Indication: VOMITING
     Route: 048
  3. OMEPRAZOLE [Concomitant]
     Route: 048

REACTIONS (4)
  - Panniculitis [Not Recovered/Not Resolved]
  - Melanocytic naevus [Not Recovered/Not Resolved]
  - Recall phenomenon [Recovered/Resolved]
  - Sunburn [Recovering/Resolving]
